FAERS Safety Report 15975881 (Version 2)
Quarter: 2019Q1

REPORT INFORMATION
  Report Type: Spontaneous
  Country: US (occurrence: US)
  Receive Date: 20190218
  Receipt Date: 20190307
  Transmission Date: 20190418
  Serious: Yes (Other)
  Sender: FDA-Public Use
  Company Number: US-BAYER-2019-029050

PATIENT
  Age: 30 Year
  Sex: Female

DRUGS (1)
  1. KYLEENA [Suspect]
     Active Substance: LEVONORGESTREL
     Indication: CONTRACEPTION
     Dosage: 17.5 MCG/24HR, CONT
     Route: 015
     Dates: start: 20171106

REACTIONS (4)
  - Drug ineffective [None]
  - Abortion spontaneous [None]
  - Pregnancy with contraceptive device [None]
  - Haemorrhage in pregnancy [Not Recovered/Not Resolved]

NARRATIVE: CASE EVENT DATE: 20180718
